FAERS Safety Report 20191966 (Version 3)
Quarter: 2022Q1

REPORT INFORMATION
  Report Type: Spontaneous
  Country: AU (occurrence: AU)
  Receive Date: 20211216
  Receipt Date: 20220209
  Transmission Date: 20220423
  Serious: Yes (Other)
  Sender: FDA-Public Use
  Company Number: AU-ABBVIE-21K-008-4199875-00

PATIENT
  Sex: Female

DRUGS (2)
  1. SKYRIZI [Suspect]
     Active Substance: RISANKIZUMAB-RZAA
     Indication: Psoriasis
     Route: 058
     Dates: start: 202004
  2. PROLIA [Concomitant]
     Active Substance: DENOSUMAB
     Indication: Osteoporosis

REACTIONS (1)
  - Gastrointestinal carcinoma [Unknown]
